FAERS Safety Report 8928985 (Version 2)
Quarter: 2012Q4

REPORT INFORMATION
  Report Type: 
  Country: DE (occurrence: DE)
  Receive Date: 20121127
  Receipt Date: 20121213
  Transmission Date: 20130627
  Serious: Yes (Death, Life-Threatening, Hospitalization, Other)
  Sender: FDA-Public Use
  Company Number: DE-ELI_LILLY_AND_COMPANY-DE201211007137

PATIENT
  Sex: Male

DRUGS (22)
  1. BYETTA [Suspect]
     Indication: TYPE 2 DIABETES MELLITUS
     Dosage: 5 ug, bid
     Route: 058
     Dates: start: 20120621
  2. BYETTA [Suspect]
     Dosage: 10 ug, bid
     Dates: start: 20120716
  3. CLONIDIN [Concomitant]
     Dosage: .25 mg, qd
  4. DIPIPERON [Concomitant]
     Dosage: 10 UNK, UNK
  5. AMLODIPIN                          /00972401/ [Concomitant]
     Dosage: UNK, bid
  6. CATAPRESSAN [Concomitant]
     Dosage: 150 DF, qd
  7. MIRTAZAPIN [Concomitant]
     Dosage: 30 mg, qd
  8. ESIDRIX [Concomitant]
     Dosage: 25 mg, qd
  9. TOREM [Concomitant]
     Dosage: 20 mg, qd
  10. PANTOZOL [Concomitant]
     Dosage: 40 mg, bid
  11. BELOC ZOK [Concomitant]
     Dosage: 95 UNK, UNK
  12. ALLOPURINOL [Concomitant]
     Dosage: 100 mg, UNK
  13. ALLOPURINOL [Concomitant]
     Dosage: 300 mg, qd
  14. FRAXIPARIN [Concomitant]
     Dosage: 0.6 ml, qd
     Route: 058
  15. ACTRAPHANE [Concomitant]
     Dosage: 26 u, qd
  16. ACTRAPHANE [Concomitant]
     Dosage: 6 u, qd
  17. LISIPLUS [Concomitant]
     Indication: HYPERTENSION
  18. METOPROLOL SUCCINATE [Concomitant]
     Indication: HYPERTENSION
     Dosage: 9.5 mg, UNK
  19. AMLODIPINE [Concomitant]
     Indication: HYPERTENSION
     Dosage: 10 mg, UNK
  20. BEZAFIBRATE [Concomitant]
     Indication: HYPERLIPIDAEMIA
     Dosage: 400 mg, UNK
  21. GLIMEPIRIDE [Concomitant]
     Indication: TYPE 2 DIABETES MELLITUS
     Dosage: 2 mg, UNK
  22. MARCUMAR [Concomitant]

REACTIONS (13)
  - Pancreatitis acute [Fatal]
  - Anaemia [Unknown]
  - Cardio-respiratory distress [Recovering/Resolving]
  - Mobility decreased [Recovering/Resolving]
  - Clostridium difficile infection [Unknown]
  - Diabetic gastroparesis [Unknown]
  - Gastritis [Unknown]
  - Gastrooesophageal reflux disease [Unknown]
  - Diabetes mellitus [Unknown]
  - Glycosylated haemoglobin increased [Unknown]
  - Hyperuricaemia [Unknown]
  - Hypokalaemia [Unknown]
  - Hyponatraemia [Unknown]
